FAERS Safety Report 13735111 (Version 1)
Quarter: 2017Q3

REPORT INFORMATION
  Report Type: Spontaneous
  Country: US (occurrence: US)
  Receive Date: 20170707
  Receipt Date: 20170707
  Transmission Date: 20171127
  Serious: Yes (Other)
  Sender: FDA-Public Use
  Company Number: None

PATIENT
  Age: 68 Year
  Sex: Female
  Weight: 56.25 kg

DRUGS (3)
  1. RALOXIFENE HCL [Suspect]
     Active Substance: RALOXIFENE
     Indication: BREAST CANCER
     Dosage: ?          OTHER STRENGTH:MG;QUANTITY:30 TABLET(S);?
     Route: 048
     Dates: start: 20170317, end: 20170703
  2. RALOXIFENE HCL [Suspect]
     Active Substance: RALOXIFENE
     Indication: PROPHYLAXIS
     Dosage: ?          OTHER STRENGTH:MG;QUANTITY:30 TABLET(S);?
     Route: 048
     Dates: start: 20170317, end: 20170703
  3. RALOXIFENE HCL [Suspect]
     Active Substance: RALOXIFENE
     Indication: OSTEOPOROSIS
     Dosage: ?          OTHER STRENGTH:MG;QUANTITY:30 TABLET(S);?
     Route: 048
     Dates: start: 20170317, end: 20170703

REACTIONS (1)
  - Deafness [None]

NARRATIVE: CASE EVENT DATE: 20170317
